FAERS Safety Report 9559469 (Version 1)
Quarter: 2013Q3

REPORT INFORMATION
  Report Type: Spontaneous
  Country: US (occurrence: None)
  Receive Date: 20130924
  Receipt Date: 20130924
  Transmission Date: 20140515
  Serious: Yes (Other)
  Sender: FDA-Public Use
  Company Number: FK201304314

PATIENT
  Age: 75 Year
  Sex: Male

DRUGS (1)
  1. FLUOROURACIL (MANUFACTURER UNNKOWN) (FLUOROURACIL) (FLUOROURACIL) [Suspect]
     Indication: SUNBURN
     Route: 061

REACTIONS (5)
  - Face oedema [None]
  - Erythema [None]
  - Discomfort [None]
  - Malaise [None]
  - Skin disorder [None]
